FAERS Safety Report 5422287-9 (Version None)
Quarter: 2007Q3

REPORT INFORMATION
  Report Type: 
  Country: None (occurrence: None)
  Receive Date: 20070820
  Receipt Date: 20070820
  Transmission Date: 20080115
  Serious: Yes (Hospitalization)
  Sender: FDA-Public Use
  Company Number: None

PATIENT
  Age: 43 Year
  Sex: Female
  Weight: 91.4 kg

DRUGS (1)
  1. TIKOSYN [Suspect]
     Indication: ATRIAL FIBRILLATION
     Dosage: 250 MCG 1 CAP DAILY PO
     Route: 048
     Dates: start: 20070731, end: 20070811

REACTIONS (3)
  - HYPOKALAEMIA [None]
  - RENAL IMPAIRMENT [None]
  - VENTRICULAR FIBRILLATION [None]
